FAERS Safety Report 18820120 (Version 1)
Quarter: 2021Q1

REPORT INFORMATION
  Report Type: Spontaneous
  Country: US (occurrence: US)
  Receive Date: 20210202
  Receipt Date: 20210202
  Transmission Date: 20210419
  Serious: No
  Sender: FDA-Public Use
  Company Number: NVSC2021US018805

PATIENT
  Age: 51 Year
  Sex: Male

DRUGS (1)
  1. EGATEN [Suspect]
     Active Substance: TRICLABENDAZOLE
     Indication: FASCIOLIASIS
     Dosage: 500 MG(BY MOUTH ONCE AND THEN 12 HOURS LATER)
     Route: 048
     Dates: start: 20210114, end: 20210114

REACTIONS (2)
  - Fatigue [Recovered/Resolved]
  - Headache [Recovered/Resolved]

NARRATIVE: CASE EVENT DATE: 20160115
